FAERS Safety Report 22648667 (Version 2)
Quarter: 2023Q2

REPORT INFORMATION
  Report Type: Spontaneous
  Country: US (occurrence: US)
  Receive Date: 20230628
  Receipt Date: 20230630
  Transmission Date: 20230722
  Serious: No
  Sender: FDA-Public Use
  Company Number: US-002147023-NVSC2023US146871

PATIENT
  Sex: Female

DRUGS (1)
  1. DORZOLAMIDE HYDROCHLORIDE [Suspect]
     Active Substance: DORZOLAMIDE HYDROCHLORIDE
     Indication: Product used for unknown indication
     Dosage: 2 %
     Route: 047

REACTIONS (2)
  - Eye pain [Unknown]
  - Poor quality product administered [Unknown]
